FAERS Safety Report 9483638 (Version 2)
Quarter: 2013Q3

REPORT INFORMATION
  Report Type: Spontaneous
  Country: CA (occurrence: CA)
  Receive Date: 20130828
  Receipt Date: 20130828
  Transmission Date: 20140515
  Serious: Yes (Life-Threatening)
  Sender: FDA-Public Use
  Company Number: CA-AMGEN-KDL272364

PATIENT
  Age: 59 Year
  Sex: Male
  Weight: 86.3 kg

DRUGS (2)
  1. ENBREL [Suspect]
     Indication: ANKYLOSING SPONDYLITIS
     Dosage: 50 MG, QWK
     Route: 058
     Dates: start: 20071117
  2. ANTIHYPERTENSIVE MEDICATION NOS [Concomitant]

REACTIONS (1)
  - Dyspnoea exertional [Not Recovered/Not Resolved]
